FAERS Safety Report 9016120 (Version 1)
Quarter: 2013Q1

REPORT INFORMATION
  Report Type: Spontaneous
  Country: GB (occurrence: GB)
  Receive Date: 20130116
  Receipt Date: 20130116
  Transmission Date: 20140127
  Serious: Yes (Hospitalization)
  Sender: FDA-Public Use
  Company Number: GB-COVIDIEN/TYCO HEALTHCARE/MALLINCKRODT-T201300082

PATIENT
  Age: 78 Year
  Sex: Male

DRUGS (2)
  1. PENNSAID [Suspect]
     Indication: PRODUCT USED FOR UNKNOWN INDICATION
     Dosage: UNK
     Route: 065
  2. RISEDRONIC ACID [Suspect]
     Indication: PRODUCT USED FOR UNKNOWN INDICATION
     Dosage: UNK
     Route: 065
     Dates: start: 20121209, end: 20121220

REACTIONS (2)
  - Oesophagitis [Recovering/Resolving]
  - Upper gastrointestinal haemorrhage [Unknown]
